FAERS Safety Report 12261790 (Version 1)
Quarter: 2016Q2

REPORT INFORMATION
  Report Type: Spontaneous
  Country: FR (occurrence: FR)
  Receive Date: 20160413
  Receipt Date: 20160413
  Transmission Date: 20160815
  Serious: Yes (Hospitalization)
  Sender: FDA-Public Use
  Company Number: FR-SA-2015SA171844

PATIENT
  Age: 64 Year
  Sex: Male

DRUGS (1)
  1. IMMUCYST [Suspect]
     Active Substance: BACILLUS CALMETTE-GUERIN SUBSTRAIN CONNAUGHT LIVE ANTIGEN
     Indication: TRANSITIONAL CELL CARCINOMA
     Route: 043
     Dates: start: 20150902, end: 20150902

REACTIONS (1)
  - Disseminated tuberculosis [Unknown]

NARRATIVE: CASE EVENT DATE: 20150903
